FAERS Safety Report 23720282 (Version 1)
Quarter: 2024Q2

REPORT INFORMATION
  Report Type: Spontaneous
  Country: US (occurrence: US)
  Receive Date: 20240408
  Receipt Date: 20240408
  Transmission Date: 20240716
  Serious: No
  Sender: FDA-Public Use
  Company Number: US-PFIZER INC-202400079857

PATIENT
  Age: 61 Year
  Sex: Female
  Weight: 52.16 kg

DRUGS (3)
  1. PAXLOVID [Suspect]
     Active Substance: NIRMATRELVIR\RITONAVIR
     Indication: COVID-19 treatment
     Dosage: NIRMATRELVIR 300 MG/RITONAVIR 100 MG, 2X/DAY
     Dates: start: 20240321, end: 20240325
  2. OXYMETAZOLINE HYDROCHLORIDE [Concomitant]
     Active Substance: OXYMETAZOLINE HYDROCHLORIDE
  3. SUDAFED COLD + ALLERGY [Concomitant]

REACTIONS (1)
  - Therapeutic product effect incomplete [Unknown]
